FAERS Safety Report 5309414-9 (Version None)
Quarter: 2007Q2

REPORT INFORMATION
  Report Type: 
  Country: None (occurrence: None)
  Receive Date: 20070424
  Receipt Date: 20070424
  Transmission Date: 20071010
  Serious: Yes (Other)
  Sender: FDA-Public Use
  Company Number: None

PATIENT
  Age: 63 Year
  Sex: Female
  Weight: 81.6475 kg

DRUGS (2)
  1. BONIVA [Suspect]
     Indication: OSTEOPOROSIS
     Dosage: ONE MONTHLY PO
     Route: 048
     Dates: start: 20070120, end: 20070420
  2. FOSAMAX [Suspect]
     Indication: OSTEOPOROSIS
     Dosage: ONE WEEKLY PO
     Route: 048
     Dates: start: 20060104, end: 20060828

REACTIONS (2)
  - ADVERSE DRUG REACTION [None]
  - HEADACHE [None]
